FAERS Safety Report 7888489-7 (Version None)
Quarter: 2011Q4

REPORT INFORMATION
  Report Type: 
  Country: None (occurrence: None)
  Receive Date: 20111103
  Receipt Date: 20111030
  Transmission Date: 20120403
  Serious: Yes (Death, Other)
  Sender: FDA-Public Use
  Company Number: NZ-B.I. PHARMACEUTICALS,INC./RIDGEFIELD-2011-AU-02005AU

PATIENT
  Sex: Female

DRUGS (5)
  1. CILAZAPRIL [Concomitant]
  2. PRADAXA [Suspect]
  3. WARFARIN SODIUM [Suspect]
  4. DIGOXIN [Concomitant]
  5. FUROSEMIDE [Concomitant]

REACTIONS (5)
  - ARRHYTHMIA [None]
  - HYPOKALAEMIA [None]
  - ACTIVATED PARTIAL THROMBOPLASTIN TIME PROLONGED [None]
  - DEATH [None]
  - RENAL FAILURE [None]
